FAERS Safety Report 4830662-6 (Version None)
Quarter: 2005Q4

REPORT INFORMATION
  Report Type: 
  Country: None (occurrence: None)
  Receive Date: 20051117
  Receipt Date: 20050919
  Transmission Date: 20060501
  Serious: Yes (Congenital Anomaly)
  Sender: FDA-Public Use
  Company Number: GB-ABBOTT-05P-167-0311336-00

PATIENT
  Age: 0 Day
  Sex: Male

DRUGS (4)
  1. VALPROATE SODIUM [Suspect]
     Indication: DRUG EXPOSURE DURING PREGNANCY
  2. VALPROATE SODIUM [Suspect]
     Indication: DRUG USE FOR UNKNOWN INDICATION
     Dates: start: 20000201
  3. CARBAMAZEPINE [Concomitant]
     Indication: DRUG USE FOR UNKNOWN INDICATION
     Dates: end: 20001101
  4. CARBAMAZEPINE [Concomitant]
     Dates: start: 20001101

REACTIONS (14)
  - ATTENTION DEFICIT/HYPERACTIVITY DISORDER [None]
  - CONGENITAL ANOMALY [None]
  - CONGENITAL NOSE MALFORMATION [None]
  - CONGENITAL ORAL MALFORMATION [None]
  - CONGENITAL VISUAL ACUITY REDUCED [None]
  - DEVELOPMENTAL DELAY [None]
  - FINGER DEFORMITY [None]
  - FOETAL VALPROATE SYNDROME [None]
  - HYPERACUSIS [None]
  - HYPOTONIA [None]
  - INJURY [None]
  - OBSESSIVE-COMPULSIVE DISORDER [None]
  - PSYCHOMOTOR HYPERACTIVITY [None]
  - SPEECH DISORDER DEVELOPMENTAL [None]
